FAERS Safety Report 5170041-8 (Version None)
Quarter: 2006Q4

REPORT INFORMATION
  Report Type: 
  Country: None (occurrence: None)
  Receive Date: 20061212
  Receipt Date: 20061130
  Transmission Date: 20070319
  Serious: Yes (Other)
  Sender: FDA-Public Use
  Company Number: GB-ELI_LILLY_AND_COMPANY-GB200611005364

PATIENT
  Age: 62 Year
  Sex: Male

DRUGS (13)
  1. GEMZAR [Suspect]
     Indication: PANCREATIC CARCINOMA
     Dosage: 1425 MG, UNK
     Dates: end: 20061129
  2. DEXAMETHASONE [Concomitant]
     Dosage: 4 MG, 3/D
  3. METOCLOPRAMIDE [Concomitant]
     Dosage: 10 MG, 3/D
  4. LORAZEPAM [Concomitant]
     Dosage: 1 MG, AS NEEDED
  5. PREDNISOLONE [Concomitant]
     Dosage: 30 MG, UNK
  6. NEUPOGEN [Concomitant]
     Dosage: 300 MG, UNK
     Dates: start: 20061101
  7. CITALOPRAM HYDROBROMIDE [Concomitant]
     Dosage: 20 MG, DAILY (1/D)
  8. IRON SULFATETHIAMIN COMPOUND TAB [Concomitant]
  9. LANSOPRAZOLE [Concomitant]
     Dosage: 30 MG, DAILY (1/D)
  10. PROCHLORPERAZINE [Concomitant]
     Dosage: 3 MG, 2/D
     Dates: start: 20061001
  11. GRANISETRON [Concomitant]
     Dosage: 1 MG, 2/D
     Dates: start: 20061001
  12. OXALIPLATIN [Concomitant]
     Indication: PANCREATIC CARCINOMA
     Dosage: 142.5 MG, UNK
  13. CIPROFLOXACIN [Concomitant]
     Dosage: 500 MG, 2/D
     Dates: start: 20061001

REACTIONS (7)
  - DYSPNOEA [None]
  - ERYTHEMA [None]
  - FACE OEDEMA [None]
  - LARYNGEAL OEDEMA [None]
  - RASH [None]
  - RASH MACULO-PAPULAR [None]
  - TACHYCARDIA [None]
